FAERS Safety Report 4325165-1 (Version None)
Quarter: 2004Q1

REPORT INFORMATION
  Report Type: 
  Country: None (occurrence: None)
  Receive Date: 20040326
  Receipt Date: 20040312
  Transmission Date: 20041129
  Serious: Yes (Hospitalization, Other)
  Sender: FDA-Public Use
  Company Number: ES-MERCK-0403ESP00027

PATIENT
  Age: 30 Month
  Sex: Female
  Weight: 10 kg

DRUGS (4)
  1. ALBUTEROL SULFATE [Concomitant]
     Indication: ASTHMA
     Route: 055
     Dates: start: 20031020
  2. BUDESONIDE [Concomitant]
     Indication: ASTHMA
     Route: 055
     Dates: start: 20031014
  3. IPRATROPIUM BROMIDE [Concomitant]
     Indication: ASTHMA
  4. SINGULAIR [Suspect]
     Indication: ASTHMA
     Route: 048
     Dates: start: 20031121, end: 20031222

REACTIONS (10)
  - ASPARTATE AMINOTRANSFERASE INCREASED [None]
  - BLOOD CHOLESTEROL INCREASED [None]
  - CAMPYLOBACTER GASTROENTERITIS [None]
  - CYSTITIS ESCHERICHIA [None]
  - ESCHERICHIA URINARY TRACT INFECTION [None]
  - GASTROENTERITIS ROTAVIRUS [None]
  - HAEMATOCHEZIA [None]
  - OTITIS MEDIA ACUTE [None]
  - PYREXIA [None]
  - VIRAL PHARYNGITIS [None]
